FAERS Safety Report 8822458 (Version 1)
Quarter: 2012Q4

REPORT INFORMATION
  Report Type: 
  Country: JP (occurrence: JP)
  Receive Date: 20121003
  Receipt Date: 20121003
  Transmission Date: 20130627
  Serious: Yes (Hospitalization)
  Sender: FDA-Public Use
  Company Number: JP-ASTELLAS-2012JP009058

PATIENT
  Age: 94 Year
  Sex: Female

DRUGS (4)
  1. VESICARE [Suspect]
     Indication: HYPERTONIC BLADDER
     Dosage: 5 mg, UID/QD
     Route: 048
     Dates: start: 20120713, end: 20120721
  2. LIPITOR [Concomitant]
     Indication: HYPERLIPIDAEMIA
     Dosage: 5 mg, UID/QD
     Route: 048
  3. AMLODIPINE                         /00972402/ [Concomitant]
     Dosage: 5 mg, Unknown/D
     Route: 048
  4. LENDORMIN [Concomitant]
     Dosage: 0.25 mg, UID/QD
     Route: 048

REACTIONS (1)
  - Sick sinus syndrome [Recovered/Resolved]
